FAERS Safety Report 4480361-8 (Version None)
Quarter: 2004Q4

REPORT INFORMATION
  Report Type: 
  Country: None (occurrence: None)
  Receive Date: 20041018
  Receipt Date: 20041011
  Transmission Date: 20050328
  Serious: Yes (Other)
  Sender: FDA-Public Use
  Company Number: HQWYE463030SEP04

PATIENT
  Age: 65 Year
  Sex: Female

DRUGS (3)
  1. EFFEXOR [Suspect]
     Dosage: 100 MG/DAY IN TWO SEPARATE DOSES
  2. TRAMADOL HCL [Suspect]
     Indication: PAIN
     Dosage: 300 MG DAILY IN THREE DOSES; 100 MG 1X PER 1 DAY
  3. TRAMADOL HCL [Suspect]
     Indication: RIB FRACTURE
     Dosage: 300 MG DAILY IN THREE DOSES; 100 MG 1X PER 1 DAY

REACTIONS (6)
  - AGITATION [None]
  - DIARRHOEA [None]
  - DRUG INTERACTION [None]
  - LOGORRHOEA [None]
  - PYREXIA [None]
  - SEROTONIN SYNDROME [None]
